FAERS Safety Report 5757027-7 (Version None)
Quarter: 2008Q2

REPORT INFORMATION
  Report Type: 
  Country: None (occurrence: None)
  Receive Date: 20080603
  Receipt Date: 20080523
  Transmission Date: 20081010
  Serious: Yes (Hospitalization, Other)
  Sender: FDA-Public Use
  Company Number: A0726903A

PATIENT
  Age: 31 Year
  Sex: Female
  Weight: 50 kg

DRUGS (2)
  1. MALARONE [Suspect]
     Indication: MALARIA PROPHYLAXIS
     Dosage: 1TAB PER DAY
     Route: 048
     Dates: start: 20080301
  2. NO CONCURRENT MEDICATION [Concomitant]

REACTIONS (8)
  - DRUG INEFFECTIVE [None]
  - JAUNDICE [None]
  - LOSS OF CONSCIOUSNESS [None]
  - MALARIA [None]
  - PYREXIA [None]
  - SPLENOMEGALY [None]
  - TACHYCARDIA [None]
  - TACHYPNOEA [None]
